FAERS Safety Report 5999415-X (Version None)
Quarter: 2008Q4

REPORT INFORMATION
  Report Type: 
  Country: None (occurrence: None)
  Receive Date: 20081215
  Receipt Date: 20081205
  Transmission Date: 20090506
  Serious: Yes (Other)
  Sender: FDA-Public Use
  Company Number: AU-AMGEN-QUU322509

PATIENT
  Sex: Male
  Weight: 84 kg

DRUGS (3)
  1. ARANESP [Suspect]
     Indication: RENAL FAILURE CHRONIC
     Dates: start: 20060101
  2. CALTRATE [Concomitant]
  3. ATENOLOL [Concomitant]

REACTIONS (2)
  - AGGRESSION [None]
  - SKIN LESION [None]
